FAERS Safety Report 11495086 (Version 1)
Quarter: 2015Q3

REPORT INFORMATION
  Report Type: Spontaneous
  Country: US (occurrence: US)
  Receive Date: 20150911
  Receipt Date: 20150911
  Transmission Date: 20151125
  Serious: No
  Sender: FDA-Public Use
  Company Number: US-ROCHE-1003142

PATIENT
  Age: 61 Year
  Sex: Female
  Weight: 72.19 kg

DRUGS (7)
  1. CLONIDINE. [Concomitant]
     Active Substance: CLONIDINE
     Route: 065
  2. SAVELLA [Concomitant]
     Active Substance: MILNACIPRAN HYDROCHLORIDE
     Route: 065
  3. ULTRAM [Concomitant]
     Active Substance: TRAMADOL HYDROCHLORIDE
     Route: 065
  4. NEURONTIN [Concomitant]
     Active Substance: GABAPENTIN
     Route: 048
  5. RIBASPHERE RIBAPAK [Suspect]
     Active Substance: RIBAVIRIN
     Indication: HEPATITIS C
     Dosage: IN DEVIDED DOSES 600/400
     Route: 048
     Dates: start: 20110614
  6. INCIVEK [Suspect]
     Active Substance: TELAPREVIR
     Indication: HEPATITIS C
     Route: 065
  7. PEGASYS [Suspect]
     Active Substance: PEGINTERFERON ALFA-2A
     Indication: HEPATITIS C
     Route: 058
     Dates: start: 20110614

REACTIONS (11)
  - Rash [Recovering/Resolving]
  - Mouth ulceration [Recovered/Resolved]
  - Pruritus [Unknown]
  - Sensory disturbance [Unknown]
  - Fatigue [Unknown]
  - Skin ulcer [Unknown]
  - Weight increased [Unknown]
  - Anxiety [Unknown]
  - Ageusia [Unknown]
  - Anaemia [Not Recovered/Not Resolved]
  - Irritability [Unknown]

NARRATIVE: CASE EVENT DATE: 20110817
